FAERS Safety Report 13265739 (Version 5)
Quarter: 2021Q2

REPORT INFORMATION
  Report Type: Report from Study
  Country: CA (occurrence: CA)
  Receive Date: 20170223
  Receipt Date: 20210614
  Transmission Date: 20210716
  Serious: Yes (Other)
  Sender: FDA-Public Use
  Company Number: PHHY2016CA100024

PATIENT
  Age: 72 Year
  Sex: Female

DRUGS (5)
  1. SANDOSTATIN LAR DEPOT [Suspect]
     Active Substance: OCTREOTIDE ACETATE
     Indication: CARCINOID TUMOUR
     Dosage: 30 MG, QMO (EVERY 4 WEEKS)
     Route: 030
     Dates: start: 20160707
  2. SANDOSTATIN LAR DEPOT [Suspect]
     Active Substance: OCTREOTIDE ACETATE
  3. OCPHYL [Concomitant]
     Indication: PRODUCT USED FOR UNKNOWN INDICATION
     Dosage: UNK UNK, TID
     Route: 065
     Dates: start: 20160518
  4. SANDOSTATIN LAR DEPOT [Suspect]
     Active Substance: OCTREOTIDE ACETATE
  5. CODEINE [Suspect]
     Active Substance: CODEINE
     Indication: PRODUCT USED FOR UNKNOWN INDICATION
     Dosage: UNK
     Route: 065

REACTIONS (29)
  - Dyspnoea exertional [Not Recovered/Not Resolved]
  - Arthralgia [Unknown]
  - Sluggishness [Unknown]
  - Back pain [Unknown]
  - Diarrhoea [Unknown]
  - Constipation [Unknown]
  - Heart rate decreased [Not Recovered/Not Resolved]
  - Epistaxis [Unknown]
  - Haemorrhoids [Recovering/Resolving]
  - Joint injury [Unknown]
  - Abdominal pain [Recovered/Resolved]
  - Dizziness [Unknown]
  - Sleep disorder [Unknown]
  - Groin pain [Unknown]
  - Flatulence [Unknown]
  - Nausea [Unknown]
  - Needle issue [Unknown]
  - Pain in extremity [Unknown]
  - Heart rate irregular [Unknown]
  - Asthenia [Not Recovered/Not Resolved]
  - Blood pressure increased [Unknown]
  - Anxiety [Unknown]
  - Fatigue [Unknown]
  - Arthritis [Unknown]
  - Herpes zoster [Recovering/Resolving]
  - Noninfective sialoadenitis [Recovered/Resolved]
  - Abdominal pain lower [Unknown]
  - Hyponatraemia [Unknown]
  - Body temperature decreased [Unknown]

NARRATIVE: CASE EVENT DATE: 20160707
